FAERS Safety Report 25248036 (Version 2)
Quarter: 2025Q2

REPORT INFORMATION
  Report Type: Spontaneous
  Country: IT (occurrence: IT)
  Receive Date: 20250429
  Receipt Date: 20250514
  Transmission Date: 20250717
  Serious: Yes (Death)
  Sender: RANBAXY
  Company Number: IT-SUN PHARMACEUTICAL INDUSTRIES LTD-2025RR-505077

PATIENT
  Age: 60 Year
  Sex: Female
  Weight: 70 kg

DRUGS (3)
  1. OXALIPLATIN [Suspect]
     Active Substance: OXALIPLATIN
     Indication: Rectal cancer stage III
     Dosage: 181 MG DAY 1
     Route: 040
     Dates: start: 20250203, end: 20250203
  2. FLUOROURACIL [Suspect]
     Active Substance: FLUOROURACIL
     Indication: Rectal cancer stage III
     Dosage: 2700 MG/DAY BY CONTINUOUS INFUSION (112 MG/HR)
     Route: 040
     Dates: start: 20250203, end: 20250205
  3. LEUCOVORIN [Concomitant]
     Active Substance: LEUCOVORIN\LEUCOVORIN CALCIUM
     Indication: Product used for unknown indication
     Route: 065

REACTIONS (1)
  - Acute myocardial infarction [Fatal]

NARRATIVE: CASE EVENT DATE: 20250205
